FAERS Safety Report 9298458 (Version 2)
Quarter: 2013Q4

REPORT INFORMATION
  Report Type: Spontaneous
  Country: DK (occurrence: GB)
  Receive Date: 20130520
  Receipt Date: 20131018
  Transmission Date: 20140711
  Serious: Yes (Other)
  Sender: FDA-Public Use
  Company Number: GB-FRI-1000045204

PATIENT
  Sex: Male

DRUGS (9)
  1. CITALOPRAM ORAL SOLUTION [Suspect]
     Indication: DEPRESSION
     Dosage: 8 MG (4 DROPS)
     Route: 048
     Dates: start: 20120702, end: 201302
  2. CITALOPRAM ORAL SOLUTION [Suspect]
     Dosage: OVERDOSE: 2 ML (80 MG)
     Route: 048
     Dates: start: 201302, end: 20130218
  3. CITALOPRAM ORAL SOLUTION [Suspect]
     Dosage: 8 MG (4 DROPS) DAILY
     Route: 048
     Dates: start: 201302
  4. ATORVASTATIN [Concomitant]
  5. BUTRANS [Concomitant]
     Dosage: 20 MCG
  6. CLOPIDOGREL [Concomitant]
  7. CO-CODAMOL [Concomitant]
  8. HUMULIN [Concomitant]
  9. RANITIDINE [Concomitant]

REACTIONS (4)
  - Somnolence [Recovered/Resolved]
  - Lethargy [Recovered/Resolved]
  - Drug prescribing error [Unknown]
  - Accidental overdose [Recovered/Resolved]
